FAERS Safety Report 16506964 (Version 2)
Quarter: 2019Q3

REPORT INFORMATION
  Report Type: Spontaneous
  Country: BE (occurrence: BE)
  Receive Date: 20190701
  Receipt Date: 20190708
  Transmission Date: 20191004
  Serious: Yes (Life-Threatening, Hospitalization, Other)
  Sender: FDA-Public Use
  Company Number: BE-PFIZER INC-2019278631

PATIENT
  Age: 18 Year
  Sex: Female

DRUGS (6)
  1. SODIUM BICARBONATE. [Suspect]
     Active Substance: SODIUM BICARBONATE
     Indication: ELECTROCARDIOGRAM QRS COMPLEX PROLONGED
     Dosage: 100 MMOL, UNK
     Route: 042
  2. ACTIVATED CHARCOAL. [Concomitant]
     Active Substance: ACTIVATED CHARCOAL
     Dosage: SINGLE DOSE
     Route: 065
  3. FLECAINIDE [Suspect]
     Active Substance: FLECAINIDE
     Indication: SUPRAVENTRICULAR TACHYCARDIA
     Dosage: EXTENDED RELEASE
     Route: 048
  4. EPINEPHRINE. [Suspect]
     Active Substance: EPINEPHRINE
     Indication: SHOCK
     Dosage: UNK
     Route: 050
  5. NOREPINEPHRINE BITARTRATE. [Suspect]
     Active Substance: NOREPINEPHRINE BITARTRATE
     Indication: SHOCK
     Dosage: UNK
     Route: 065
  6. SODIUM BICARBONATE. [Suspect]
     Active Substance: SODIUM BICARBONATE
     Dosage: 300 MILLIMOLE (AGAIN 300 MMOL)
     Route: 042

REACTIONS (11)
  - Overdose [Recovering/Resolving]
  - Haemodynamic instability [Recovered/Resolved]
  - Ventricular tachycardia [Recovered/Resolved]
  - Metabolic acidosis [Recovered/Resolved]
  - Shock [Recovered/Resolved]
  - Electrocardiogram QRS complex prolonged [Recovered/Resolved]
  - Ventricular fibrillation [Recovered/Resolved]
  - Ventricular arrhythmia [Recovered/Resolved]
  - Toxicity to various agents [Recovering/Resolving]
  - Peripheral ischaemia [Unknown]
  - Drug ineffective [Unknown]
